FAERS Safety Report 19150903 (Version 1)
Quarter: 2021Q2

REPORT INFORMATION
  Report Type: Spontaneous
  Country: US (occurrence: US)
  Receive Date: 20210419
  Receipt Date: 20210419
  Transmission Date: 20210717
  Serious: No
  Sender: FDA-Public Use
  Company Number: US-GLAXOSMITHKLINE-USCH2021019392

PATIENT

DRUGS (2)
  1. ADVIL DUAL ACTION WITH ACETAMINOPHEN [Suspect]
     Active Substance: ACETAMINOPHEN\IBUPROFEN
     Indication: OSTEOPOROSIS
  2. ADVIL DUAL ACTION WITH ACETAMINOPHEN [Suspect]
     Active Substance: ACETAMINOPHEN\IBUPROFEN
     Indication: ARTHRITIS
     Dosage: 1 DF, QD

REACTIONS (2)
  - Product use issue [Unknown]
  - Drug effective for unapproved indication [Unknown]
